FAERS Safety Report 9300136 (Version 1)
Quarter: 2013Q1

REPORT INFORMATION
  Report Type: Spontaneous
  Country: US (occurrence: None)
  Receive Date: 20130107
  Receipt Date: 20130107
  Transmission Date: 20140127
  Serious: Yes (Other)
  Sender: FDA-Public Use
  Company Number: PHEH2012US021507

PATIENT
  Age: 42 Year
  Sex: Female
  Weight: 63.5 kg

DRUGS (5)
  1. GILENYA [Suspect]
     Indication: RELAPSING-REMITTING MULTIPLE SCLEROSIS
     Route: 048
     Dates: start: 20120222
  2. GABAPENTIN (GABAPENTIN) [Concomitant]
  3. CLONAZEPAM (CLONAZEPAM) (CLONAZEPAM) [Concomitant]
  4. BENAZEPRIL (BENAZEPRIL) [Concomitant]
  5. ABILIFY (ARIPIPRAZOLE) [Concomitant]

REACTIONS (4)
  - White blood cell count decreased [None]
  - Platelet count decreased [None]
  - Neutrophil count decreased [None]
  - Lymphocyte count decreased [None]
